FAERS Safety Report 21437678 (Version 3)
Quarter: 2023Q1

REPORT INFORMATION
  Report Type: Report from Study
  Country: US (occurrence: US)
  Receive Date: 20221011
  Receipt Date: 20230118
  Transmission Date: 20230417
  Serious: Yes (Other)
  Sender: FDA-Public Use
  Company Number: US-ABBVIE-22K-163-4403088-00

PATIENT
  Sex: Male

DRUGS (5)
  1. HUMIRA [Suspect]
     Active Substance: ADALIMUMAB
     Indication: Crohn^s disease
     Dosage: CITRATE FREE
     Route: 058
     Dates: start: 20200601
  2. PFIZER-BIONTECH COVID-19 VACCINE [Concomitant]
     Active Substance: TOZINAMERAN
     Indication: COVID-19 immunisation
     Dosage: FIRST DOSE?FREQUENCY- ONE IN ONCE
     Route: 030
     Dates: start: 20211001, end: 20211001
  3. PFIZER-BIONTECH COVID-19 VACCINE [Concomitant]
     Active Substance: TOZINAMERAN
     Indication: COVID-19 immunisation
     Dosage: SECOND DOSE?FREQUENCY- ONE IN ONCE
     Route: 030
     Dates: start: 20211101, end: 20211101
  4. PFIZER-BIONTECH COVID-19 VACCINE [Concomitant]
     Active Substance: TOZINAMERAN
     Indication: COVID-19 immunisation
     Dosage: BOOSTER DOSE?FREQUENCY- ONE IN ONCE
     Route: 030
  5. KETAMINE [Concomitant]
     Active Substance: KETAMINE
     Indication: Product used for unknown indication

REACTIONS (18)
  - Pulmonary fibrosis [Unknown]
  - Stress [Unknown]
  - Marital problem [Unknown]
  - Back pain [Not Recovered/Not Resolved]
  - Crohn^s disease [Recovering/Resolving]
  - Inflammation [Unknown]
  - Blood pressure increased [Recovering/Resolving]
  - Pneumonia [Unknown]
  - Rheumatoid arthritis [Recovering/Resolving]
  - Colitis [Not Recovered/Not Resolved]
  - Gastrointestinal disorder [Not Recovered/Not Resolved]
  - Blood testosterone increased [Unknown]
  - Osteoarthritis [Unknown]
  - Depression [Recovering/Resolving]
  - Malaise [Unknown]
  - Suicidal ideation [Recovering/Resolving]
  - Musculoskeletal disorder [Recovering/Resolving]
  - Blood pressure abnormal [Unknown]

NARRATIVE: CASE EVENT DATE: 20220101
